FAERS Safety Report 14759946 (Version 2)
Quarter: 2018Q3

REPORT INFORMATION
  Report Type: Spontaneous
  Country: US (occurrence: US)
  Receive Date: 20180413
  Receipt Date: 20180925
  Transmission Date: 20181010
  Serious: No
  Sender: FDA-Public Use
  Company Number: US-NEUROCRINE BIOSCIENCES INC.-2018NBI01024

PATIENT
  Age: 47 Year
  Sex: Female
  Weight: 88.08 kg

DRUGS (21)
  1. INGREZZA [Suspect]
     Active Substance: VALBENAZINE
     Dosage: EVERY ALTERNATIVE DAY
  2. DEXILANT [Concomitant]
     Active Substance: DEXLANSOPRAZOLE
     Indication: HYPERCHLORHYDRIA
  3. TOPIRAMATE. [Concomitant]
     Active Substance: TOPIRAMATE
     Indication: MIGRAINE
  4. BENZTROPINE. [Concomitant]
     Active Substance: BENZTROPINE
     Indication: DYSKINESIA
  5. INGREZZA [Suspect]
     Active Substance: VALBENAZINE
     Route: 048
     Dates: start: 20180323, end: 20180330
  6. SEROQUEL [Concomitant]
     Active Substance: QUETIAPINE FUMARATE
     Indication: ANXIETY
  7. TOPIRAMATE. [Concomitant]
     Active Substance: TOPIRAMATE
  8. RANITIDINE. [Concomitant]
     Active Substance: RANITIDINE
     Indication: HYPERCHLORHYDRIA
  9. INGREZZA [Suspect]
     Active Substance: VALBENAZINE
     Indication: TARDIVE DYSKINESIA
     Route: 048
     Dates: start: 20180316, end: 20180322
  10. CLONAZEPAM. [Concomitant]
     Active Substance: CLONAZEPAM
     Indication: ANXIETY
  11. CLONAZEPAM. [Concomitant]
     Active Substance: CLONAZEPAM
  12. VENTOLIN [Concomitant]
     Active Substance: ALBUTEROL SULFATE
     Indication: ASTHMA
  13. INGREZZA [Suspect]
     Active Substance: VALBENAZINE
     Dosage: ALTERNATES BETWEEN TAKING 80 MG (TWO 40 MG CAPSULES) AND 40 MG EVERY OTHER DAY
     Route: 048
  14. FENOFIBRATE. [Concomitant]
     Active Substance: FENOFIBRATE
     Indication: BLOOD CHOLESTEROL INCREASED
  15. LEVOCETIRIZINE [Concomitant]
     Active Substance: LEVOCETIRIZINE
     Indication: MYCOTIC ALLERGY
  16. METFORMIN [Concomitant]
     Active Substance: METFORMIN HYDROCHLORIDE
     Indication: PROPHYLAXIS
  17. ADVAIR HFA [Concomitant]
     Active Substance: FLUTICASONE PROPIONATE\SALMETEROL XINAFOATE
     Indication: ASTHMA
     Dosage: 200
  18. OMEPRAZOLE. [Concomitant]
     Active Substance: OMEPRAZOLE
  19. INGREZZA [Suspect]
     Active Substance: VALBENAZINE
     Route: 048
     Dates: start: 20180331
  20. INGREZZA [Suspect]
     Active Substance: VALBENAZINE
  21. NASONEX [Concomitant]
     Active Substance: MOMETASONE FUROATE
     Indication: RHINORRHOEA

REACTIONS (12)
  - Reduced facial expression [Recovering/Resolving]
  - Neck pain [Not Recovered/Not Resolved]
  - Off label use [Unknown]
  - Facial paralysis [Recovered/Resolved]
  - Drooling [Recovered/Resolved]
  - Musculoskeletal disorder [Recovered/Resolved]
  - Diarrhoea [Recovered/Resolved]
  - Feeling abnormal [Recovering/Resolving]
  - Fatigue [Recovering/Resolving]
  - Fall [Unknown]
  - Drug effect incomplete [None]
  - Somnolence [Recovered/Resolved]

NARRATIVE: CASE EVENT DATE: 201803
